FAERS Safety Report 8551799-4 (Version None)
Quarter: 2012Q3

REPORT INFORMATION
  Report Type: 
  Country: None (occurrence: None)
  Receive Date: 20120730
  Receipt Date: 20120718
  Transmission Date: 20120928
  Serious: Yes (Life-Threatening, Hospitalization)
  Sender: FDA-Public Use
  Company Number: CH-FRI-1000037408

PATIENT
  Sex: Male

DRUGS (16)
  1. GLUCOPHAGE [Suspect]
     Indication: TYPE 2 DIABETES MELLITUS
     Dosage: 850 MG
     Route: 048
     Dates: end: 20120501
  2. ESCITALOPRAM [Suspect]
     Indication: DEPRESSION
  3. LANTUS [Concomitant]
     Dosage: 4 IU
     Route: 058
  4. BISOPROLOL FUMARATE [Concomitant]
     Dosage: 10 MG
     Route: 048
     Dates: end: 20120501
  5. ATORVASTATIN CALCIUM [Concomitant]
     Dosage: 40 MG
     Route: 048
  6. HALDOL [Concomitant]
     Route: 048
  7. ASPIRIN [Suspect]
     Indication: CEREBRAL INFARCTION
     Dosage: 100 MG
     Route: 048
     Dates: start: 20110416, end: 20120511
  8. REMERON [Suspect]
     Indication: BIPOLAR DISORDER
     Dosage: 30 MG
     Route: 048
  9. ESCITALOPRAM [Suspect]
     Indication: BIPOLAR DISORDER
     Dosage: 10 MG
     Route: 048
  10. PLAVIX [Suspect]
     Indication: CEREBRAL INFARCTION
     Dosage: 75 MG
     Route: 048
     Dates: start: 20110426, end: 20120511
  11. FLECTOR EP [Suspect]
     Route: 050
  12. TAMSULOSIN HCL [Concomitant]
     Dosage: 400 MCG
     Route: 048
  13. REMERON [Suspect]
     Indication: DEPRESSION
  14. ASPIRIN [Suspect]
     Dosage: 100 MG
     Route: 048
     Dates: start: 20120521
  15. TRIATEC COMP 2.5 MG/12.5 MG [Concomitant]
     Dosage: 2.5 MG
     Route: 048
     Dates: end: 20120501
  16. SEROQUEL [Concomitant]
     Dosage: 100 MG
     Route: 048

REACTIONS (4)
  - MELAENA [None]
  - LOWER GASTROINTESTINAL HAEMORRHAGE [None]
  - HAEMORRHAGIC ANAEMIA [None]
  - RENAL FAILURE ACUTE [None]
